FAERS Safety Report 7040234-3 (Version None)
Quarter: 2010Q4

REPORT INFORMATION
  Report Type: 
  Country: None (occurrence: None)
  Receive Date: 20101012
  Receipt Date: 20101001
  Transmission Date: 20110411
  Serious: Yes (Life-Threatening, Other)
  Sender: FDA-Public Use
  Company Number: JP-PFIZER INC-2010024725

PATIENT
  Age: 79 Year
  Sex: Male
  Weight: 51 kg

DRUGS (15)
  1. CAMPTOSAR [Suspect]
     Indication: COLORECTAL CANCER
     Dosage: 224 MG, UNK
     Route: 041
     Dates: start: 20090903, end: 20090903
  2. CAMPTOSAR [Suspect]
     Dosage: 140 MG, UNK
     Route: 041
     Dates: start: 20100105, end: 20100105
  3. ERBITUX [Suspect]
     Indication: COLORECTAL CANCER
     Dosage: 605 MG, UNK
     Route: 041
     Dates: start: 20090903, end: 20090903
  4. ERBITUX [Suspect]
     Dosage: 375 MG, UNK
     Route: 041
     Dates: start: 20090910, end: 20090910
  5. ERBITUX [Suspect]
     Dosage: 280 MG, UNK
     Route: 041
     Dates: start: 20100105, end: 20100112
  6. CALCIUM LEVOFOLINATE [Concomitant]
     Indication: COLORECTAL CANCER
     Dosage: 300 MG, UNK
     Route: 041
     Dates: start: 20090903, end: 20090903
  7. FLUOROURACIL [Concomitant]
     Indication: COLORECTAL CANCER
     Dosage: 600 MG, (408.2 MG/M2)
     Route: 040
     Dates: start: 20090903, end: 20090903
  8. FLUOROURACIL [Concomitant]
     Dosage: 3600 MG, (2449 MG/M2)
     Route: 041
     Dates: start: 20090903, end: 20090903
  9. DOPAMINE HCL [Concomitant]
     Indication: HYPOTENSION
     Dosage: 100 MG, SID, BID, TID, BID, SID
     Route: 041
     Dates: start: 20090917, end: 20090923
  10. MIDAZOLAM [Concomitant]
     Indication: SEDATION
     Dosage: 100 MG, UNK
     Route: 041
     Dates: start: 20090917, end: 20090918
  11. SOLU-MEDROL [Concomitant]
     Indication: HYPOTENSION
     Dosage: 500 MG, UNK
     Route: 041
     Dates: start: 20090917, end: 20090918
  12. ALBUMIN (HUMAN) [Concomitant]
     Indication: HYPOALBUMINAEMIA
     Dosage: 50ML SID, BID, SID
     Route: 041
     Dates: start: 20090917, end: 20090922
  13. DOBUTAMINE HYDROCHLORIDE [Concomitant]
     Indication: HYPOTENSION
     Dosage: 100 MG, SID, BID, SID
     Route: 041
     Dates: start: 20090918, end: 20090920
  14. NOREPINEPHRINE [Concomitant]
     Indication: HYPOTENSION
     Dosage: 1 MG, UNK
     Route: 041
     Dates: start: 20090918, end: 20090918
  15. FRESH FROZEN PLASMA [Concomitant]
     Indication: HYPOPROTEINAEMIA
     Dosage: 450 ML, SID, BID
     Route: 041
     Dates: start: 20090918, end: 20090923

REACTIONS (8)
  - HAEMOGLOBIN DECREASED [None]
  - ILEUS PARALYTIC [None]
  - LEUKOPENIA [None]
  - METABOLIC ACIDOSIS [None]
  - NEUTROPENIA [None]
  - PYREXIA [None]
  - RESPIRATORY ALKALOSIS [None]
  - THROMBOCYTOPENIA [None]
